FAERS Safety Report 22384246 (Version 1)
Quarter: 2023Q2

REPORT INFORMATION
  Report Type: Spontaneous
  Country: KR (occurrence: KR)
  Receive Date: 20230530
  Receipt Date: 20230530
  Transmission Date: 20230721
  Serious: Yes (Other)
  Sender: FDA-Public Use
  Company Number: KR-PFIZER INC-202300200370

PATIENT
  Age: 77 Year
  Sex: Female

DRUGS (1)
  1. PAXLOVID [Suspect]
     Active Substance: NIRMATRELVIR\RITONAVIR
     Indication: COVID-19 treatment
     Dosage: UNK, 2X/DAY (EVERY 12 HOURS)
     Route: 048
     Dates: start: 20230523

REACTIONS (1)
  - Blindness transient [Recovering/Resolving]

NARRATIVE: CASE EVENT DATE: 20230524
